FAERS Safety Report 8455767-2 (Version None)
Quarter: 2012Q2

REPORT INFORMATION
  Report Type: 
  Country: None (occurrence: None)
  Receive Date: 20120621
  Receipt Date: 20120614
  Transmission Date: 20120825
  Serious: Yes (Other)
  Sender: FDA-Public Use
  Company Number: GB-PFIZER INC-2012093768

PATIENT
  Age: 49 Year
  Sex: Female
  Weight: 70 kg

DRUGS (12)
  1. DOCUSATE [Concomitant]
     Dosage: UNK
     Route: 048
  2. DOMPERIDONE [Suspect]
     Indication: PRODUCT USED FOR UNKNOWN INDICATION
     Dosage: 20 MG, 1X/DAY
     Route: 048
  3. PACLITAXEL [Suspect]
     Indication: BREAST CANCER
     Dosage: 315 MG, EVERY TWO WEEKS
     Route: 042
     Dates: start: 20110524, end: 20110607
  4. DOMPERIDONE [Suspect]
     Dosage: 20MG, DAILY
     Route: 048
  5. BIOTENE MOUTHWASH [Concomitant]
     Dosage: 15 MG, UNSPECIFIED INTERVAL
  6. PACLITAXEL [Suspect]
     Dosage: 300 MG, EVERY 2 WEEKS
     Route: 042
     Dates: start: 20110621, end: 20110705
  7. DEXAMETHASONE [Suspect]
     Indication: PRODUCT USED FOR UNKNOWN INDICATION
     Dosage: 20 MG, 1X/DAY
     Route: 042
  8. DEXAMETHASONE [Suspect]
     Dosage: 4 MG, 2X/DAY
     Route: 048
  9. GRANISETRON [Suspect]
     Indication: PRODUCT USED FOR UNKNOWN INDICATION
     Dosage: 1 MG, 2X/DAY
     Route: 048
  10. CHLORPHENAMINE [Suspect]
     Indication: PRODUCT USED FOR UNKNOWN INDICATION
     Dosage: 10 MG, 1X/DAY
     Route: 042
  11. RANITIDINE [Suspect]
     Indication: PRODUCT USED FOR UNKNOWN INDICATION
     Dosage: 50 MG, 1X/DAY
     Route: 042
  12. PEGFILGRASTIM [Suspect]
     Indication: CHEMOTHERAPY
     Dosage: 6 MG, 1X/DAY
     Route: 058

REACTIONS (5)
  - RESPIRATORY DEPTH DECREASED [None]
  - FATIGUE [None]
  - CHEST PAIN [None]
  - DYSPNOEA [None]
  - CHEST DISCOMFORT [None]
